FAERS Safety Report 4375425-3 (Version None)
Quarter: 2004Q2

REPORT INFORMATION
  Report Type: 
  Country: None (occurrence: None)
  Receive Date: 20040610
  Receipt Date: 20040526
  Transmission Date: 20050107
  Serious: Yes (Hospitalization)
  Sender: FDA-Public Use
  Company Number: 200411874JP

PATIENT
  Age: 74 Year
  Sex: Male
  Weight: 51 kg

DRUGS (8)
  1. KETEK [Suspect]
     Indication: BRONCHITIS
     Route: 048
     Dates: start: 20040414, end: 20040414
  2. SOLANTAL [Concomitant]
     Indication: BRONCHITIS
     Route: 048
     Dates: start: 20040412, end: 20040414
  3. ALANTA [Concomitant]
     Indication: GASTRITIS
     Route: 048
     Dates: start: 20040412, end: 20040414
  4. CODEINE PHOSPHATE AND ACETAMINOPHEN [Concomitant]
     Indication: BRONCHITIS
     Route: 048
     Dates: start: 20040414, end: 20040414
  5. PL GRAN. [Concomitant]
     Indication: BRONCHITIS
     Route: 048
     Dates: start: 20040414, end: 20040414
  6. CEFZON [Concomitant]
     Indication: BRONCHITIS
     Route: 048
     Dates: start: 20040412, end: 20040414
  7. COMELIAN [Concomitant]
     Indication: ANGINA PECTORIS
     Route: 048
     Dates: start: 20030419
  8. COMELIAN [Concomitant]
     Indication: PROTEINURIA
     Route: 048
     Dates: start: 20030419

REACTIONS (3)
  - ANAEMIA [None]
  - BRONCHITIS [None]
  - HYPOGLYCAEMIA [None]
